FAERS Safety Report 6372985-8 (Version None)
Quarter: 2009Q3

REPORT INFORMATION
  Report Type: 
  Country: None (occurrence: None)
  Receive Date: 20090924
  Receipt Date: 20081211
  Transmission Date: 20100115
  Serious: Yes (Other)
  Sender: FDA-Public Use
  Company Number: US-ASTRAZENECA-2008UW27902

PATIENT
  Age: 34 Year
  Sex: Male

DRUGS (6)
  1. SEROQUEL [Suspect]
     Route: 048
     Dates: start: 20070910
  2. LITHOBID [Concomitant]
     Dosage: 300MG AM; 600MG PM
  3. MULTI-VITAMINS [Concomitant]
  4. FISH OIL [Concomitant]
  5. VITAMIN E [Concomitant]
  6. VITAMIN D [Concomitant]

REACTIONS (2)
  - BLOOD CHOLESTEROL INCREASED [None]
  - BLOOD TRIGLYCERIDES INCREASED [None]
